FAERS Safety Report 10174512 (Version 2)
Quarter: 2014Q2

REPORT INFORMATION
  Report Type: Report from Study
  Country: PL (occurrence: PL)
  Receive Date: 20140515
  Receipt Date: 20140515
  Transmission Date: 20141212
  Serious: Yes (Hospitalization)
  Sender: FDA-Public Use
  Company Number: PL-B.I. PHARMACEUTICALS,INC./RIDGEFIELD-2012-BI-00019EU

PATIENT
  Age: 53 Year
  Sex: Female
  Weight: 46 kg

DRUGS (6)
  1. BIBW 2992 [Suspect]
     Indication: BREAST CANCER METASTATIC
     Route: 048
     Dates: start: 20121025, end: 20121203
  2. VINORELBINE [Suspect]
     Indication: BREAST CANCER METASTATIC
     Dosage: 5.4286 MG
     Route: 042
     Dates: start: 20121025, end: 20121025
  3. VINORELBINE [Suspect]
     Dosage: 5.4286 MG
     Route: 042
     Dates: start: 20121031, end: 20121031
  4. VINORELBINE [Suspect]
     Dosage: 5.3214 MG
     Route: 042
     Dates: start: 20121115, end: 20121115
  5. VINORELBINE [Suspect]
     Dosage: 5.3214 MG
     Route: 042
     Dates: start: 20121123, end: 20121123
  6. MATRIFEN FENTANYL [Concomitant]
     Indication: ANALGESIC THERAPY
     Dosage: STRENGTH: 12 MCG/H ONE FOR 72 HOURS
     Route: 062
     Dates: start: 20120921

REACTIONS (6)
  - Vomiting [Recovered/Resolved]
  - Neutropenia [Not Recovered/Not Resolved]
  - Hyperbilirubinaemia [Not Recovered/Not Resolved]
  - Metastases to liver [Not Recovered/Not Resolved]
  - Neutropenia [Recovered/Resolved]
  - Neutropenia [Not Recovered/Not Resolved]
